FAERS Safety Report 8073377-6 (Version None)
Quarter: 2012Q1

REPORT INFORMATION
  Report Type: 
  Country: None (occurrence: None)
  Receive Date: 20120126
  Receipt Date: 20120120
  Transmission Date: 20120608
  Serious: Yes (Life-Threatening, Hospitalization, Other)
  Sender: FDA-Public Use
  Company Number: DE-ACTELION-A-US2011-57613

PATIENT

DRUGS (5)
  1. VENTAVIS [Suspect]
     Indication: PULMONARY ARTERIAL HYPERTENSION
     Dosage: 10 ?G, X6/DAY
     Route: 055
     Dates: start: 20110502
  2. REVATIO [Concomitant]
  3. VOLIBRIS [Concomitant]
  4. MARCUMAR [Suspect]
  5. LEVOTHYROXINE SODIUM [Concomitant]

REACTIONS (5)
  - COMPARTMENT SYNDROME [None]
  - MUSCULOSKELETAL STIFFNESS [None]
  - ERYTHEMA [None]
  - OEDEMA PERIPHERAL [None]
  - VENOUS THROMBOSIS [None]
